FAERS Safety Report 21716764 (Version 1)
Quarter: 2022Q4

REPORT INFORMATION
  Report Type: Spontaneous
  Country: AU (occurrence: AU)
  Receive Date: 20221212
  Receipt Date: 20221212
  Transmission Date: 20230112
  Serious: Yes (Life-Threatening, Other)
  Sender: FDA-Public Use
  Company Number: AU-NAPPMUNDI-GBR-2022-0103542

PATIENT

DRUGS (1)
  1. OXYCODONE HYDROCHLORIDE [Interacting]
     Active Substance: OXYCODONE HYDROCHLORIDE
     Indication: Gastrointestinal surgery
     Dosage: UNK
     Route: 065

REACTIONS (4)
  - Cardiac arrest [Unknown]
  - Product administered to patient of inappropriate age [Unknown]
  - Off label use [Unknown]
  - Drug interaction [Unknown]
